FAERS Safety Report 13183901 (Version 7)
Quarter: 2018Q3

REPORT INFORMATION
  Report Type: Spontaneous
  Country: US (occurrence: US)
  Receive Date: 20170203
  Receipt Date: 20180827
  Transmission Date: 20181010
  Serious: No
  Sender: FDA-Public Use
  Company Number: US-BRISTOL-MYERS SQUIBB COMPANY-BMS-2017-005622

PATIENT
  Age: 80 Year
  Sex: Female

DRUGS (1)
  1. ORENCIA [Suspect]
     Active Substance: ABATACEPT
     Indication: RHEUMATOID ARTHRITIS
     Dosage: 125 MG, QWK
     Route: 058
     Dates: start: 20161208

REACTIONS (3)
  - Drug ineffective [Unknown]
  - Herpes zoster [Recovered/Resolved]
  - Contusion [Unknown]

NARRATIVE: CASE EVENT DATE: 20171130
